FAERS Safety Report 5068272-0 (Version None)
Quarter: 2006Q3

REPORT INFORMATION
  Report Type: 
  Country: None (occurrence: None)
  Receive Date: 20060802
  Receipt Date: 20050706
  Transmission Date: 20061208
  Serious: Yes (Hospitalization)
  Sender: FDA-Public Use
  Company Number: US-BRISTOL-MYERS SQUIBB COMPANY-13027875

PATIENT
  Sex: Female

DRUGS (2)
  1. COUMADIN [Suspect]
     Indication: THROMBOSIS
     Dates: start: 20050401
  2. LOVENOX [Suspect]
     Indication: THROMBOSIS
     Dosage: STARTED FOR 8 DAYS (1 WEEK 1 DAY DURATION); DISCONTINUED THEN LATER RESTARTED.
     Dates: start: 20050401

REACTIONS (2)
  - DRUG INEFFECTIVE [None]
  - THROMBOSIS [None]
